FAERS Safety Report 13030950 (Version 2)
Quarter: 2016Q4

REPORT INFORMATION
  Report Type: Spontaneous
  Country: US (occurrence: US)
  Receive Date: 20161215
  Receipt Date: 20161221
  Transmission Date: 20170207
  Serious: Yes (Other)
  Sender: FDA-Public Use
  Company Number: US-CELGENEUS-USA-2016122884

PATIENT
  Sex: Male

DRUGS (1)
  1. OTEZLA [Suspect]
     Active Substance: APREMILAST
     Indication: PSORIASIS
     Dosage: 60 MG
     Route: 048
     Dates: start: 201605, end: 201610

REACTIONS (6)
  - Anxiety [Unknown]
  - Wrist fracture [Unknown]
  - Fall [Unknown]
  - Loss of consciousness [Unknown]
  - Psoriasis [Unknown]
  - Depression [Unknown]
